FAERS Safety Report 5811915-1 (Version None)
Quarter: 2008Q3

REPORT INFORMATION
  Report Type: 
  Country: None (occurrence: None)
  Receive Date: 20080716
  Receipt Date: 20080709
  Transmission Date: 20090109
  Serious: Yes (Death)
  Sender: FDA-Public Use
  Company Number: DE-ROCHE-575114

PATIENT
  Sex: Male
  Weight: 60 kg

DRUGS (4)
  1. ROCEPHIN [Suspect]
     Indication: MENINGITIS
     Route: 042
     Dates: start: 20080618, end: 20080619
  2. KEPPRA [Concomitant]
     Route: 042
     Dates: start: 20080618, end: 20080619
  3. METRONIDAZOLE HCL [Concomitant]
     Indication: MENINGITIS
     Route: 042
     Dates: start: 20080618, end: 20080619
  4. FOSFOMYCIN [Concomitant]
     Indication: MENINGITIS
     Route: 042
     Dates: start: 20080618, end: 20080619

REACTIONS (2)
  - MALIGNANT NEOPLASM PROGRESSION [None]
  - OROPHARYNGEAL CANCER STAGE UNSPECIFIED [None]
